FAERS Safety Report 8536325-8 (Version None)
Quarter: 2012Q3

REPORT INFORMATION
  Report Type: 
  Country: None (occurrence: None)
  Receive Date: 20120725
  Receipt Date: 20120711
  Transmission Date: 20120928
  Serious: Yes (Death)
  Sender: FDA-Public Use
  Company Number: US-MYLANLABS-2010S1017735

PATIENT
  Age: 21 Year
  Sex: Male
  Weight: 51.71 kg

DRUGS (11)
  1. OXYCODONE AND ASPIRIN /00554201/ [Concomitant]
     Dosage: 10/325MG
  2. ALBUTEROL [Concomitant]
  3. AMITIZA [Concomitant]
  4. IBUPROFEN [Concomitant]
  5. HYDROCODONE BITARTRATE AND ACETAMINOPHEN [Concomitant]
     Dosage: 7.5MG/650MG
  6. ZOLPIDEM [Concomitant]
  7. FENTANYL-100 [Suspect]
     Indication: PAIN
     Dosage: CHANGE Q3D
     Route: 062
     Dates: end: 20080929
  8. PROMETHAZINE [Concomitant]
     Route: 054
  9. VITAMIN [Concomitant]
  10. PENICILLIN [Concomitant]
  11. ENABLEX [Concomitant]

REACTIONS (1)
  - TOXICITY TO VARIOUS AGENTS [None]
